FAERS Safety Report 9242467 (Version 1)
Quarter: 2013Q2

REPORT INFORMATION
  Report Type: Spontaneous
  Country: KR (occurrence: KR)
  Receive Date: 20130419
  Receipt Date: 20130419
  Transmission Date: 20140414
  Serious: Yes (Other)
  Sender: FDA-Public Use
  Company Number: KR-GILEAD-2013-0073744

PATIENT
  Age: 58 Year
  Sex: Male

DRUGS (1)
  1. ADEFOVIR DIPIVOXIL [Suspect]
     Indication: CHRONIC HEPATITIS

REACTIONS (1)
  - Osteomalacia [Unknown]
